FAERS Safety Report 5053759-7 (Version None)
Quarter: 2006Q3

REPORT INFORMATION
  Report Type: 
  Country: None (occurrence: None)
  Receive Date: 20060718
  Receipt Date: 20060710
  Transmission Date: 20061208
  Serious: Yes (Hospitalization)
  Sender: FDA-Public Use
  Company Number: 2006CG01195

PATIENT
  Age: 53 Year
  Sex: Female
  Weight: 65 kg

DRUGS (7)
  1. NOLVADEX [Suspect]
     Indication: BREAST CANCER
     Route: 048
     Dates: start: 20050701, end: 20060603
  2. LEXOMIL [Concomitant]
     Indication: DEPRESSION
     Route: 048
     Dates: end: 20060603
  3. PROZAC [Concomitant]
     Indication: DEPRESSION
     Route: 048
     Dates: end: 20060603
  4. HAVLANE [Concomitant]
     Indication: DEPRESSION
     Route: 048
     Dates: end: 20060603
  5. DEPAMIDE [Concomitant]
     Route: 048
     Dates: end: 20060603
  6. LAROXYL [Concomitant]
     Indication: NEURALGIA
     Route: 048
  7. NEURONTIN [Concomitant]
     Indication: NEURALGIA
     Route: 048

REACTIONS (3)
  - ATRIAL SEPTAL DEFECT [None]
  - ISCHAEMIC STROKE [None]
  - PULMONARY EMBOLISM [None]
